FAERS Safety Report 8519112-6 (Version None)
Quarter: 2012Q3

REPORT INFORMATION
  Report Type: 
  Country: None (occurrence: None)
  Receive Date: 20120718
  Receipt Date: 20120709
  Transmission Date: 20120928
  Serious: Yes (Other)
  Sender: FDA-Public Use
  Company Number: FR-ABBOTT-12P-056-0944990-00

PATIENT
  Sex: Female

DRUGS (5)
  1. CALCOS VITAMINE D3 [Suspect]
     Indication: OSTEOPOROSIS
     Route: 048
     Dates: end: 20111101
  2. FENOFIBRATE [Suspect]
     Indication: HYPERCHOLESTEROLAEMIA
     Route: 048
     Dates: end: 20111101
  3. ORBENIN CAP [Suspect]
     Indication: BREAST ABSCESS
     Route: 048
     Dates: start: 20110912, end: 20110920
  4. ACETAMINOPHEN [Suspect]
     Indication: PRODUCT USED FOR UNKNOWN INDICATION
     Route: 048
     Dates: end: 20111101
  5. ACTONEL [Suspect]
     Indication: OSTEOPOROSIS
     Route: 048
     Dates: end: 20111101

REACTIONS (4)
  - CHOLESTASIS [None]
  - HEPATITIS CHOLESTATIC [None]
  - FATIGUE [None]
  - BREAST ABSCESS [None]
